FAERS Safety Report 14547308 (Version 2)
Quarter: 2018Q2

REPORT INFORMATION
  Report Type: Spontaneous
  Country: US (occurrence: US)
  Receive Date: 20180219
  Receipt Date: 20180503
  Transmission Date: 20180711
  Serious: Yes (Other)
  Sender: FDA-Public Use
  Company Number: US-BAYER-2018-031305

PATIENT
  Age: 46 Year
  Weight: 70.3 kg

DRUGS (2)
  1. AVELOX [Suspect]
     Active Substance: MOXIFLOXACIN HYDROCHLORIDE
     Indication: UPPER RESPIRATORY TRACT INFECTION
     Dosage: 400 MG, UNK
     Dates: start: 20081219, end: 20081224
  2. CIPRO [Suspect]
     Active Substance: CIPROFLOXACIN HYDROCHLORIDE
     Indication: URINARY TRACT INFECTION
     Dosage: 3 TIMES A DAY
     Dates: start: 20171125, end: 20171219

REACTIONS (7)
  - Swelling [None]
  - Drug hypersensitivity [None]
  - Paraesthesia [None]
  - Anxiety [None]
  - Neuropathy peripheral [Not Recovered/Not Resolved]
  - Pruritus [None]
  - Rash [None]

NARRATIVE: CASE EVENT DATE: 200812
